FAERS Safety Report 22965305 (Version 5)
Quarter: 2024Q2

REPORT INFORMATION
  Report Type: Report from Study
  Country: US (occurrence: US)
  Receive Date: 20230921
  Receipt Date: 20240520
  Transmission Date: 20240715
  Serious: Yes (Hospitalization)
  Sender: FDA-Public Use
  Company Number: US-ALNYLAM PHARMACEUTICALS, INC.-ALN-2023-004556

PATIENT

DRUGS (4)
  1. GIVLAARI [Suspect]
     Active Substance: GIVOSIRAN SODIUM
     Indication: Porphyria acute
     Dosage: UNK
     Route: 065
     Dates: start: 20201224, end: 20201224
  2. GIVLAARI [Suspect]
     Active Substance: GIVOSIRAN SODIUM
     Dosage: 181.43 MILLIGRAM, MONTHLY (24-28 DAYS)
     Route: 058
     Dates: start: 20230912
  3. GIVLAARI [Suspect]
     Active Substance: GIVOSIRAN SODIUM
     Dosage: 2.5 MILLIGRAM/KILOGRAM, MONTHLY (EVERY 28 DAYS)
     Route: 058
  4. GIVLAARI [Suspect]
     Active Substance: GIVOSIRAN SODIUM
     Dosage: 162.54 MILLIGRAM, MONTHLY (EVERY 28 DAYS)
     Route: 058

REACTIONS (16)
  - Epstein-Barr virus infection [Unknown]
  - Malaise [Not Recovered/Not Resolved]
  - Pharyngitis streptococcal [Unknown]
  - Lymphadenopathy [Not Recovered/Not Resolved]
  - Fatigue [Not Recovered/Not Resolved]
  - Back pain [Not Recovered/Not Resolved]
  - Pain in extremity [Not Recovered/Not Resolved]
  - Abdominal pain upper [Not Recovered/Not Resolved]
  - Porphyria acute [Not Recovered/Not Resolved]
  - Clostridium difficile infection [Unknown]
  - Sepsis [Not Recovered/Not Resolved]
  - Bacteraemia [Unknown]
  - Urinary tract infection [Unknown]
  - Sinusitis [Unknown]
  - Weight decreased [Unknown]
  - Illness [Unknown]
